FAERS Safety Report 7284291-8 (Version None)
Quarter: 2011Q1

REPORT INFORMATION
  Report Type: 
  Country: None (occurrence: None)
  Receive Date: 20110209
  Receipt Date: 20110202
  Transmission Date: 20110831
  Serious: Yes (Other)
  Sender: FDA-Public Use
  Company Number: US-US-EMD SERONO, INC.-7036383

PATIENT
  Sex: Female

DRUGS (3)
  1. WELLBUTRIN [Concomitant]
     Indication: DEPRESSION
     Dates: start: 20100301
  2. CLONZAEPAM [Concomitant]
     Indication: ANXIETY
     Dates: start: 20100301, end: 20101001
  3. REBIF [Suspect]
     Indication: MULTIPLE SCLEROSIS
     Dates: start: 20100408, end: 20101001

REACTIONS (3)
  - PROGESTERONE DECREASED [None]
  - ABORTION SPONTANEOUS [None]
  - DRUG EXPOSURE DURING PREGNANCY [None]
